FAERS Safety Report 7906729-2 (Version None)
Quarter: 2011Q4

REPORT INFORMATION
  Report Type: 
  Country: None (occurrence: None)
  Receive Date: 20111110
  Receipt Date: 20111031
  Transmission Date: 20120403
  Serious: Yes (Other)
  Sender: FDA-Public Use
  Company Number: US-JNJFOC-20111013498

PATIENT
  Sex: Female
  Weight: 29.48 kg

DRUGS (1)
  1. REMICADE [Suspect]
     Indication: CROHN'S DISEASE
     Route: 042
     Dates: start: 20110909, end: 20110926

REACTIONS (5)
  - DIARRHOEA [None]
  - EXTRASYSTOLES [None]
  - PALPITATIONS [None]
  - INSOMNIA [None]
  - JOINT SWELLING [None]
